FAERS Safety Report 5524827-8 (Version None)
Quarter: 2007Q4

REPORT INFORMATION
  Report Type: 
  Country: None (occurrence: None)
  Receive Date: 20071126
  Receipt Date: 20071116
  Transmission Date: 20080405
  Serious: Yes (Hospitalization, Other)
  Sender: FDA-Public Use
  Company Number: PHFR2007GB03364

PATIENT
  Age: 9 Year
  Sex: Female
  Weight: 18.6 kg

DRUGS (9)
  1. DICLOFENAC SODIUM [Suspect]
     Dosage: 75 MG/DAY
     Route: 048
     Dates: start: 20061005
  2. METHOTREXATE [Suspect]
     Dosage: 12.5 MG, QMO
     Route: 058
     Dates: start: 19980615
  3. PREDNISOLONE [Suspect]
     Dosage: 20 MG/DAY
     Route: 048
     Dates: start: 19980615
  4. TACROLIMUS [Suspect]
     Dosage: 4 MG
     Route: 048
     Dates: start: 20060628
  5. ASPIRIN [Concomitant]
     Dosage: 75 MG/DAY
     Route: 048
     Dates: start: 20060728
  6. CYCLIZINE [Concomitant]
     Dosage: 50 MG/DAY
     Route: 048
     Dates: start: 20060117
  7. LANSOPRAZOLE [Concomitant]
     Dosage: 30 MG/DAY
     Route: 048
     Dates: start: 20050615
  8. NAPROXEN [Concomitant]
     Dosage: 125 MG/DAY
     Route: 048
     Dates: start: 20040615
  9. SUCRALFATE [Concomitant]
     Dosage: 1 G/DAY
     Route: 048
     Dates: start: 20060117

REACTIONS (3)
  - HYPERTENSION [None]
  - RASH MACULAR [None]
  - VOMITING [None]
